FAERS Safety Report 5146956-3 (Version None)
Quarter: 2006Q4

REPORT INFORMATION
  Report Type: 
  Country: None (occurrence: None)
  Receive Date: 20060905
  Receipt Date: 20060130
  Transmission Date: 20070319
  Serious: Yes (Life-Threatening, Hospitalization)
  Sender: FDA-Public Use
  Company Number: 28397

PATIENT
  Age: 85 Year
  Sex: Female

DRUGS (9)
  1. HIPREX [Suspect]
     Dosage: UNKNOWN, ( UNKNOWN) UNKNOWN
     Dates: start: 20051128
  2. SELEXID [Concomitant]
     Dosage: (1 DOSAGE FORMS), UNKNOWN
     Dates: start: 20051128, end: 20051128
  3. ALBYL0E (75 MG, UNKNOWN) [Concomitant]
  4. SELO-ZOK (200 MG, UNKNOWN) [Concomitant]
  5. DIURAL (40 MG, UNKNOWN) [Concomitant]
  6. LISINOPRIL [Concomitant]
  7. DIGITOXIN (0.05MG, UNKNOWN) [Concomitant]
  8. IMDUR (UNKNOWN) [Concomitant]
  9. SIMVASTATIN [Concomitant]

REACTIONS (4)
  - ANAPHYLACTIC REACTION [None]
  - PRURITUS GENERALISED [None]
  - URTICARIA [None]
  - VOMITING [None]
